FAERS Safety Report 8781346 (Version 2)
Quarter: 2013Q1

REPORT INFORMATION
  Report Type: Spontaneous
  Country: BR (occurrence: BR)
  Receive Date: 20120913
  Receipt Date: 20130215
  Transmission Date: 20140127
  Serious: Yes (Death, Other)
  Sender: FDA-Public Use
  Company Number: PHHY2012BR079317

PATIENT
  Sex: Female

DRUGS (1)
  1. DIOVAN [Suspect]
     Indication: BLOOD PRESSURE
     Dosage: 2 DF, BID (320 MG DAILY)

REACTIONS (3)
  - Death [Fatal]
  - Cataract [Recovering/Resolving]
  - Local swelling [Recovering/Resolving]
